FAERS Safety Report 16232522 (Version 1)
Quarter: 2019Q2

REPORT INFORMATION
  Report Type: Spontaneous
  Country: US (occurrence: US)
  Receive Date: 20190424
  Receipt Date: 20190424
  Transmission Date: 20190711
  Serious: Yes (Disabling)
  Sender: FDA-Public Use
  Company Number: US-SA-2019SA110969

PATIENT
  Age: 53 Year
  Sex: Female

DRUGS (1)
  1. LANTUS SOLOSTAR [Suspect]
     Active Substance: INSULIN GLARGINE
     Indication: TYPE 2 DIABETES MELLITUS
     Dosage: 25 UNITS IF HER BLOOD SUGAR IS HIGH AND 15 UNITS IF HER BLOOD SUGAR IS LOW
     Route: 065

REACTIONS (3)
  - Incorrect dose administered [Unknown]
  - Device breakage [Unknown]
  - Disability [Unknown]
